FAERS Safety Report 18704738 (Version 1)
Quarter: 2021Q1

REPORT INFORMATION
  Report Type: Spontaneous
  Country: US (occurrence: US)
  Receive Date: 20210105
  Receipt Date: 20210105
  Transmission Date: 20210419
  Serious: Yes (Hospitalization)
  Sender: FDA-Public Use
  Company Number: US-LUPIN PHARMACEUTICALS INC.-2020-11291

PATIENT
  Age: 54 Year
  Sex: Male

DRUGS (6)
  1. ERTAPENEM. [Suspect]
     Active Substance: ERTAPENEM SODIUM
     Indication: OESOPHAGEAL INFECTION
  2. CEFDINIR. [Suspect]
     Active Substance: CEFDINIR
     Indication: OESOPHAGEAL INFECTION
  3. AUGMENTINE [AMOXICILLIN TRIHYDRATE;CLAVULANATE POTASSIUM] [Suspect]
     Active Substance: AMOXICILLIN\CLAVULANATE POTASSIUM
     Indication: ACTINOMYCOSIS
     Dosage: UNK
     Route: 065
  4. ERTAPENEM. [Suspect]
     Active Substance: ERTAPENEM SODIUM
     Indication: ACTINOMYCOSIS
     Dosage: UNK
     Route: 042
  5. CEFDINIR. [Suspect]
     Active Substance: CEFDINIR
     Indication: ACTINOMYCOSIS
     Dosage: UNK
     Route: 048
  6. AUGMENTINE [AMOXICILLIN TRIHYDRATE;CLAVULANATE POTASSIUM] [Suspect]
     Active Substance: AMOXICILLIN\CLAVULANATE POTASSIUM
     Indication: OESOPHAGEAL INFECTION

REACTIONS (1)
  - Drug ineffective [Unknown]
